FAERS Safety Report 10419700 (Version 4)
Quarter: 2015Q2

REPORT INFORMATION
  Report Type: Report from Study
  Country: JP (occurrence: JP)
  Receive Date: 20140829
  Receipt Date: 20150526
  Transmission Date: 20150821
  Serious: Yes (Hospitalization, Other)
  Sender: FDA-Public Use
  Company Number: JP-GLAXOSMITHKLINE-B1026105A

PATIENT
  Age: 84 Year
  Sex: Male
  Weight: 43 kg

DRUGS (19)
  1. ELTROMBOPAG [Suspect]
     Active Substance: ELTROMBOPAG
     Route: 048
     Dates: start: 20140218, end: 20140706
  2. METHYCOBAL [Concomitant]
     Active Substance: METHYLCOBALAMIN
     Route: 048
  3. DEPAKENE [Concomitant]
     Active Substance: VALPROIC ACID
     Indication: VASCULAR DEMENTIA
     Route: 048
  4. BAYASPIRIN [Concomitant]
     Active Substance: ASPIRIN
     Indication: THROMBOSIS PROPHYLAXIS
     Dosage: 100 MG, UNK
     Dates: start: 20140714
  5. ELTROMBOPAG [Suspect]
     Active Substance: ELTROMBOPAG
     Route: 048
     Dates: start: 20130213, end: 20130416
  6. ASPARA-CA [Concomitant]
     Active Substance: CALCIUM ASPARTATE
     Route: 048
  7. MEMARY [Concomitant]
     Active Substance: MEMANTINE HYDROCHLORIDE
     Route: 048
  8. ELTROMBOPAG [Suspect]
     Active Substance: ELTROMBOPAG
     Route: 048
     Dates: start: 20140722
  9. FERROMIA [Concomitant]
     Active Substance: FERROUS CITRATE
     Route: 048
  10. BETANIS [Concomitant]
     Active Substance: MIRABEGRON
     Route: 048
  11. ROZEREM [Concomitant]
     Active Substance: RAMELTEON
     Indication: INSOMNIA
     Route: 048
     Dates: start: 20130724
  12. ELTROMBOPAG [Suspect]
     Active Substance: ELTROMBOPAG
     Route: 048
     Dates: start: 20130417, end: 20140217
  13. ACTOS [Concomitant]
     Active Substance: PIOGLITAZONE HYDROCHLORIDE
     Route: 048
  14. ELTROMBOPAG [Suspect]
     Active Substance: ELTROMBOPAG
     Indication: IMMUNE THROMBOCYTOPENIC PURPURA
     Route: 048
     Dates: start: 20130123, end: 20130212
  15. NESINA [Concomitant]
     Active Substance: ALOGLIPTIN BENZOATE
     Route: 048
  16. ALFAROL [Concomitant]
     Active Substance: ALFACALCIDOL
     Route: 048
  17. SERMION [Concomitant]
     Active Substance: NICERGOLINE
     Route: 048
     Dates: start: 20130724
  18. MUCOSTA [Concomitant]
     Active Substance: REBAMIPIDE
     Indication: GASTRITIS PROPHYLAXIS
     Route: 048
  19. BONALON [Concomitant]
     Active Substance: ALENDRONATE SODIUM
     Route: 048

REACTIONS (9)
  - Pain in extremity [Recovered/Resolved]
  - Pyelonephritis [Recovered/Resolved]
  - Pneumonia [Recovered/Resolved]
  - Disseminated intravascular coagulation [Recovered/Resolved]
  - Sepsis [Recovered/Resolved]
  - Muscle haemorrhage [Recovered/Resolved]
  - Colitis ischaemic [Recovered/Resolved]
  - Upper respiratory tract inflammation [Recovering/Resolving]
  - Pleural effusion [Recovered/Resolved]

NARRATIVE: CASE EVENT DATE: 20131208
